FAERS Safety Report 5232718-5 (Version None)
Quarter: 2007Q1

REPORT INFORMATION
  Report Type: 
  Country: None (occurrence: None)
  Receive Date: 20070206
  Receipt Date: 20070206
  Transmission Date: 20070707
  Serious: Yes (Hospitalization, Other)
  Sender: FDA-Public Use
  Company Number: None

PATIENT
  Age: 59 Year
  Sex: Female
  Weight: 80.2867 kg

DRUGS (3)
  1. ACTONEL [Suspect]
     Indication: OSTEOPENIA
     Dosage: ONLY ONE DOSE
     Dates: start: 20070103, end: 20070103
  2. LIPITOR [Concomitant]
  3. ACIPHEX [Concomitant]

REACTIONS (8)
  - BONE PAIN [None]
  - DRUG INEFFECTIVE [None]
  - HYPOKINESIA [None]
  - INSOMNIA [None]
  - MUSCLE SPASMS [None]
  - ORAL INTAKE REDUCED [None]
  - PAIN [None]
  - PAIN IN JAW [None]
